FAERS Safety Report 12222123 (Version 3)
Quarter: 2016Q2

REPORT INFORMATION
  Report Type: Report from Study
  Country: CA (occurrence: CA)
  Receive Date: 20160330
  Receipt Date: 20160629
  Transmission Date: 20160815
  Serious: Yes (Other)
  Sender: FDA-Public Use
  Company Number: CA-JNJFOC-20160323136

PATIENT
  Age: 46 Year
  Sex: Female
  Weight: 73.5 kg

DRUGS (1)
  1. SIMPONI [Suspect]
     Active Substance: GOLIMUMAB
     Indication: PSORIATIC ARTHROPATHY
     Dosage: 0, 4 AND EVERY 8 WEEKS THEREAFTER
     Route: 042
     Dates: start: 20160321, end: 20160321

REACTIONS (6)
  - Product use issue [Unknown]
  - Hypertension [Unknown]
  - Headache [Unknown]
  - Throat tightness [Recovering/Resolving]
  - Pruritus [Recovering/Resolving]
  - Off label use [Unknown]

NARRATIVE: CASE EVENT DATE: 20160321
